FAERS Safety Report 9496734 (Version 1)
Quarter: 2013Q3

REPORT INFORMATION
  Report Type: Report from Study
  Country: TR (occurrence: TR)
  Receive Date: 20130904
  Receipt Date: 20130904
  Transmission Date: 20140515
  Serious: Yes (Death)
  Sender: FDA-Public Use
  Company Number: TR-MYLANLABS-2013S1019028

PATIENT
  Age: 53 Year
  Sex: Female

DRUGS (2)
  1. MELPHALAN [Suspect]
     Indication: BONE MARROW CONDITIONING REGIMEN
     Route: 050
  2. FENTANYL [Suspect]
     Indication: ANALGESIC THERAPY
     Route: 061

REACTIONS (1)
  - Encephalopathy [Fatal]
